FAERS Safety Report 19988178 (Version 1)
Quarter: 2021Q4

REPORT INFORMATION
  Report Type: Report from Study
  Country: US (occurrence: US)
  Receive Date: 20211022
  Receipt Date: 20211022
  Transmission Date: 20220303
  Serious: Yes (Hospitalization, Other)
  Sender: FDA-Public Use
  Company Number: US-UCBSA-2021048818

PATIENT
  Age: 58 Year
  Sex: Male
  Weight: 86.18 kg

DRUGS (6)
  1. CERTOLIZUMAB PEGOL [Suspect]
     Active Substance: CERTOLIZUMAB PEGOL
     Indication: Crohn^s disease
     Dosage: 400 MILLIGRAM, EV 4 WEEKS
     Route: 058
     Dates: start: 20201020
  2. MERCAPTOPURINE [Suspect]
     Active Substance: MERCAPTOPURINE
     Indication: Product used for unknown indication
     Dosage: 50 MILLIGRAM, 2X/DAY (BID)
     Route: 048
     Dates: start: 20210330, end: 2021
  3. MERCAPTOPURINE [Suspect]
     Active Substance: MERCAPTOPURINE
     Dosage: DOSE INCREASED UNK
     Dates: start: 2021, end: 20210602
  4. FOLIC ACID [Concomitant]
     Active Substance: FOLIC ACID
     Indication: Product used for unknown indication
     Dosage: 1 MILLIGRAM, ONCE DAILY (QD)
     Route: 048
     Dates: start: 20210304, end: 20210602
  5. IMODIUM [Concomitant]
     Active Substance: LOPERAMIDE HYDROCHLORIDE
     Indication: Product used for unknown indication
     Dosage: UNK
     Dates: start: 20210302
  6. ONDANSETRON [Concomitant]
     Active Substance: ONDANSETRON
     Indication: Product used for unknown indication
     Dosage: 4 MILLIGRAM, 4X/DAY (QID), TRANSLIGUAL
     Dates: start: 20210310

REACTIONS (6)
  - Biliary sphincterotomy [Recovering/Resolving]
  - Pancreatitis acute [Recovering/Resolving]
  - Bile duct stone [Recovering/Resolving]
  - Jaundice [Recovering/Resolving]
  - Abdominal discomfort [Recovering/Resolving]
  - Musculoskeletal pain [Recovering/Resolving]

NARRATIVE: CASE EVENT DATE: 20210101
